FAERS Safety Report 5710240-7 (Version None)
Quarter: 2008Q2

REPORT INFORMATION
  Report Type: 
  Country: None (occurrence: None)
  Receive Date: 20080418
  Receipt Date: 20080408
  Transmission Date: 20081010
  Serious: Yes (Other)
  Sender: FDA-Public Use
  Company Number: US-PFIZER INC-2008010157

PATIENT
  Sex: Female
  Weight: 28.6 kg

DRUGS (8)
  1. LYRICA [Suspect]
     Indication: NEUROPATHY PERIPHERAL
  2. LYRICA [Suspect]
     Indication: BACK PAIN
  3. CELEBREX [Suspect]
  4. DEMEROL [Suspect]
  5. LOTENSIN [Concomitant]
  6. ESTROGENIC SUBSTANCE [Concomitant]
  7. STOOL SOFTENER [Concomitant]
  8. SKELAXIN [Concomitant]

REACTIONS (19)
  - ABDOMINAL DISTENSION [None]
  - BACK INJURY [None]
  - BACK PAIN [None]
  - FALL [None]
  - FEELING HOT [None]
  - HYPOAESTHESIA [None]
  - INTERVERTEBRAL DISC PROTRUSION [None]
  - LUMBAR VERTEBRAL FRACTURE [None]
  - MOBILITY DECREASED [None]
  - MUSCLE SPASMS [None]
  - NAUSEA [None]
  - NEUROPATHY PERIPHERAL [None]
  - OEDEMA PERIPHERAL [None]
  - PAIN IN EXTREMITY [None]
  - PARAESTHESIA [None]
  - PELVIC PAIN [None]
  - ROAD TRAFFIC ACCIDENT [None]
  - SCIATICA [None]
  - WEIGHT INCREASED [None]
